FAERS Safety Report 24528198 (Version 1)
Quarter: 2024Q4

REPORT INFORMATION
  Report Type: Spontaneous
  Country: US (occurrence: US)
  Receive Date: 20241021
  Receipt Date: 20241021
  Transmission Date: 20250115
  Serious: Yes (Life-Threatening, Hospitalization, Other)
  Sender: Unknown Manufacturer
  Company Number: US-862174955-ML2024-05545

PATIENT
  Age: 28 Year
  Sex: Female

DRUGS (1)
  1. BUPROPION [Suspect]
     Active Substance: BUPROPION
     Indication: Product used for unknown indication

REACTIONS (3)
  - Toxic epidermal necrolysis [Recovering/Resolving]
  - Respiratory tract oedema [Recovering/Resolving]
  - Septic shock [Recovering/Resolving]
